FAERS Safety Report 4371175-8 (Version None)
Quarter: 2004Q2

REPORT INFORMATION
  Report Type: 
  Country: None (occurrence: None)
  Receive Date: 20040604
  Receipt Date: 20040521
  Transmission Date: 20050107
  Serious: Yes (Hospitalization)
  Sender: FDA-Public Use
  Company Number: AU-ROCHE-368424

PATIENT
  Age: 73 Year
  Sex: Female
  Weight: 66.4 kg

DRUGS (10)
  1. IBANDRONIC ACID [Suspect]
     Indication: OSTEOPOROSIS POSTMENOPAUSAL
     Route: 048
     Dates: start: 20030109, end: 20040514
  2. IBANDRONIC ACID [Suspect]
     Route: 048
     Dates: start: 20040520, end: 20040521
  3. PLACEBO [Suspect]
     Indication: OSTEOPOROSIS POSTMENOPAUSAL
     Route: 042
     Dates: start: 20030109, end: 20040510
  4. OMEPRAZOLE [Concomitant]
     Dates: start: 19920615
  5. CARTIA (ASPIRIN) [Concomitant]
     Dates: start: 19980509
  6. NORMISON [Concomitant]
     Dates: start: 20020915
  7. CELEBREX [Concomitant]
     Dates: end: 20030514
  8. LIPITOR [Concomitant]
     Dates: start: 20030603
  9. COVERSYL [Concomitant]
     Dates: start: 20030514
  10. LUVOX [Concomitant]
     Dates: start: 20040329

REACTIONS (11)
  - CELLULITIS [None]
  - ELECTROCARDIOGRAM T WAVE INVERSION [None]
  - EYE DISCHARGE [None]
  - EYE MOVEMENT DISORDER [None]
  - EYELID OEDEMA [None]
  - HYPOTENSION [None]
  - IRIDOCYCLITIS [None]
  - NEUTROPHILIA [None]
  - PYREXIA [None]
  - SKIN DISORDER [None]
  - VISUAL ACUITY REDUCED [None]
